FAERS Safety Report 12912212 (Version 2)
Quarter: 2017Q1

REPORT INFORMATION
  Report Type: Spontaneous
  Country: US (occurrence: US)
  Receive Date: 20161104
  Receipt Date: 20170306
  Transmission Date: 20170428
  Serious: No
  Sender: FDA-Public Use
  Company Number: US-009507513-1610USA003960

PATIENT
  Sex: Male

DRUGS (1)
  1. PROSCAR [Suspect]
     Active Substance: FINASTERIDE
     Dosage: 5 (UNITS NOT PROVIDED), QD
     Route: 048
     Dates: start: 20110509

REACTIONS (4)
  - Painful ejaculation [Unknown]
  - Drug hypersensitivity [Unknown]
  - Erectile dysfunction [Unknown]
  - Prostatitis [Unknown]

NARRATIVE: CASE EVENT DATE: 2014
